FAERS Safety Report 18646523 (Version 1)
Quarter: 2020Q4

REPORT INFORMATION
  Report Type: Spontaneous
  Country: NL (occurrence: NL)
  Receive Date: 20201222
  Receipt Date: 20201222
  Transmission Date: 20210114
  Serious: Yes (Hospitalization)
  Sender: FDA-Public Use
  Company Number: NL-SUN PHARMACEUTICAL INDUSTRIES LTD-2020RR-272071

PATIENT
  Sex: Female

DRUGS (4)
  1. OXAZEPAM TABLET 10MG / BRAND NAME NOT SPECIFIEDOXAZEPAM TABLET 10MG [Concomitant]
     Indication: PRODUCT USED FOR UNKNOWN INDICATION
     Dosage: TABLET, 10 MG (MILLIGRAM) ()
     Route: 065
  2. ISOTRETINOIN. [Suspect]
     Active Substance: ISOTRETINOIN
     Indication: ACNE
     Dosage: 1X PER DAY 2 CAPSULES. DOSAGE WAS 1 OR 2 CAPSULES PER DAY ()
     Route: 065
     Dates: start: 20201028
  3. ETHINYLESTRADIOL/DROSPIRENON TAB 30UG/3MG / BRAND NAME NOT SPECIFIE... [Concomitant]
     Indication: PRODUCT USED FOR UNKNOWN INDICATION
     Dosage: COATED TABLET, 30 MCG (MICROGRAMS) / 3 MG (MILLIGRAMS) ()
     Route: 065
  4. PAROXETINE TABLET 20MG / BRAND NAME NOT SPECIFIEDPAROXETINE TABLET ... [Suspect]
     Active Substance: PAROXETINE
     Indication: DEPRESSION
     Dosage: 20 MILLIGRAM, DAILY, 1 X PER DAY 1 TABLET
     Route: 065
     Dates: start: 20201028, end: 20201124

REACTIONS (1)
  - Serotonin syndrome [Recovering/Resolving]
